FAERS Safety Report 9410644 (Version 1)
Quarter: 2013Q2

REPORT INFORMATION
  Report Type: Spontaneous
  Country: IN (occurrence: None)
  Receive Date: 20130620
  Receipt Date: 20130620
  Transmission Date: 20140414
  Serious: Yes (Other)
  Sender: FDA-Public Use
  Company Number: AUR-APL-2010-02953

PATIENT
  Age: 19 Year
  Sex: Female

DRUGS (5)
  1. TOPIRAMATE (TOPIRAMATE) [Suspect]
     Indication: WEIGHT CONTROL
  2. TOPIRAMATE (TOPIRAMATE) [Suspect]
     Indication: OFF LABEL USE
  3. BUPROPION (BUPROPION) [Concomitant]
  4. ESCITALOPRAM (ESCITALOPRAM) [Concomitant]
  5. LAMOTRIGINE (LAMOTRIGINE) [Concomitant]

REACTIONS (2)
  - Cognitive disorder [None]
  - Sedation [None]
